FAERS Safety Report 5093667-9 (Version None)
Quarter: 2006Q3

REPORT INFORMATION
  Report Type: 
  Country: None (occurrence: None)
  Receive Date: 20060829
  Receipt Date: 20060817
  Transmission Date: 20061208
  Serious: Yes (Hospitalization)
  Sender: FDA-Public Use
  Company Number: 142760

PATIENT
  Age: 51 Year
  Sex: Female
  Weight: 70.7611 kg

DRUGS (4)
  1. AVONEX [Suspect]
     Indication: MULTIPLE SCLEROSIS
     Dosage: 30 UG; QW; IM
     Route: 030
     Dates: start: 20000201
  2. PREMPRO [Concomitant]
  3. BACLOFEN [Concomitant]
  4. LITHOBID [Concomitant]

REACTIONS (2)
  - OVARIAN CANCER [None]
  - PELVIC MASS [None]
